FAERS Safety Report 25985088 (Version 1)
Quarter: 2025Q4

REPORT INFORMATION
  Report Type: Spontaneous
  Country: US (occurrence: US)
  Receive Date: 20251031
  Receipt Date: 20251031
  Transmission Date: 20260118
  Serious: No
  Sender: JOHNSON AND JOHNSON
  Company Number: US-JNJFOC-20251030098

PATIENT
  Age: 37 Year
  Sex: Female

DRUGS (1)
  1. TREMFYA [Suspect]
     Active Substance: GUSELKUMAB
     Indication: Psoriatic arthropathy
     Route: 065

REACTIONS (3)
  - Product storage error [Unknown]
  - Product dose omission issue [Unknown]
  - Product shape issue [Unknown]

NARRATIVE: CASE EVENT DATE: 20251014
